FAERS Safety Report 4342523-X (Version None)
Quarter: 2004Q2

REPORT INFORMATION
  Report Type: 
  Country: None (occurrence: None)
  Receive Date: 20040414
  Receipt Date: 20040330
  Transmission Date: 20050107
  Serious: Yes (Other)
  Sender: FDA-Public Use
  Company Number: 601192

PATIENT
  Age: 66 Year
  Sex: Male
  Weight: 102.5129 kg

DRUGS (5)
  1. GAMMAGARD S/D [Suspect]
     Indication: NEUROPATHY
     Dosage: 50 GM; Q2W, INTRAVENOUS
     Route: 042
     Dates: start: 20031219, end: 20031219
  2. PLAVIX [Concomitant]
  3. ZOCOR [Concomitant]
  4. ASPIRIN [Concomitant]
  5. FLUOXETINE [Concomitant]

REACTIONS (4)
  - CEREBRAL INFARCTION [None]
  - CEREBROVASCULAR ACCIDENT [None]
  - HEADACHE [None]
  - VISUAL DISTURBANCE [None]
